FAERS Safety Report 14670531 (Version 1)
Quarter: 2018Q1

REPORT INFORMATION
  Report Type: Spontaneous
  Country: BR (occurrence: BR)
  Receive Date: 20180322
  Receipt Date: 20180322
  Transmission Date: 20180509
  Serious: Yes (Hospitalization, Other)
  Sender: FDA-Public Use
  Company Number: BR-BAYER-2018-049761

PATIENT
  Age: 32 Year
  Sex: Male

DRUGS (1)
  1. AVALOX [Suspect]
     Active Substance: MOXIFLOXACIN HYDROCHLORIDE
     Indication: RHINITIS
     Dosage: 1 DF, QD
     Route: 048
     Dates: start: 20180309, end: 20180309

REACTIONS (5)
  - Eyelid ptosis [Recovered/Resolved]
  - Aphasia [Recovered/Resolved]
  - Swelling face [Recovered/Resolved]
  - Respiratory arrest [Recovered/Resolved]
  - Hypersensitivity [Recovered/Resolved]

NARRATIVE: CASE EVENT DATE: 20180309
